FAERS Safety Report 18213711 (Version 4)
Quarter: 2020Q3

REPORT INFORMATION
  Report Type: Spontaneous
  Country: JP (occurrence: JP)
  Receive Date: 20200831
  Receipt Date: 20200924
  Transmission Date: 20201103
  Serious: Yes (Life-Threatening, Hospitalization, Other)
  Sender: FDA-Public Use
  Company Number: JP-SHIRE-JP202027781

PATIENT

DRUGS (15)
  1. ABILIFY [Suspect]
     Active Substance: ARIPIPRAZOLE
     Indication: ATTENTION DEFICIT HYPERACTIVITY DISORDER
     Dosage: 1 MILLIGRAM, 1X/DAY:QD
     Route: 048
     Dates: start: 20190215
  2. INTUNIV [Suspect]
     Active Substance: GUANFACINE HYDROCHLORIDE
     Indication: ATTENTION DEFICIT HYPERACTIVITY DISORDER
     Dosage: 1 MILLIGRAM, 1X/DAY:QD
     Route: 048
     Dates: start: 20191109
  3. RISPERDAL [Suspect]
     Active Substance: RISPERIDONE
     Indication: RESTLESSNESS
     Dosage: UNK UNK, 1X/DAY:QD
     Route: 048
     Dates: end: 20200820
  4. ARIPIPRAZOLE. [Suspect]
     Active Substance: ARIPIPRAZOLE
     Dosage: 1 MILLIGRAM, 1X/DAY:QD
     Route: 048
  5. METLIGINE [Concomitant]
     Active Substance: MIDODRINE HYDROCHLORIDE
     Indication: ORTHOSTATIC INTOLERANCE
  6. KANZOTO [Concomitant]
     Active Substance: HERBALS
     Indication: PRODUCT USED FOR UNKNOWN INDICATION
  7. ABILIFY [Suspect]
     Active Substance: ARIPIPRAZOLE
     Dosage: 1.5 MILLIGRAM, 1X/DAY:QD
     Route: 048
     Dates: end: 20200820
  8. ARIPIPRAZOLE. [Suspect]
     Active Substance: ARIPIPRAZOLE
     Indication: ATTENTION DEFICIT HYPERACTIVITY DISORDER
     Dosage: 3 MILLIGRAM, 1X/DAY:QD
     Route: 048
  9. SEISHOEKKITO [Suspect]
     Active Substance: HERBALS
     Indication: PROPHYLAXIS
     Dosage: 5 GRAM, 1X/DAY:QD
     Route: 048
     Dates: start: 20200813, end: 20200820
  10. ARIPIPRAZOLE. [Suspect]
     Active Substance: ARIPIPRAZOLE
     Dosage: 1.5 MILLIGRAM, 1X/DAY:QD
     Route: 048
  11. SERENACE [Concomitant]
     Active Substance: HALOPERIDOL
     Indication: ADJUSTMENT DISORDER
  12. INTUNIV [Suspect]
     Active Substance: GUANFACINE HYDROCHLORIDE
     Dosage: 3 MILLIGRAM, 1X/DAY:QD
     Route: 048
     Dates: start: 20191217
  13. INTUNIV [Suspect]
     Active Substance: GUANFACINE HYDROCHLORIDE
     Dosage: 4 MILLIGRAM, 1X/DAY:QD
     Route: 048
     Dates: start: 20200511, end: 20200820
  14. HALOPERIDOL. [Suspect]
     Active Substance: HALOPERIDOL
     Indication: ATTENTION DEFICIT HYPERACTIVITY DISORDER
     Route: 065
  15. RISUMIC [Concomitant]
     Active Substance: AMEZINIUM METILSULFATE
     Indication: ORTHOSTATIC INTOLERANCE

REACTIONS (4)
  - Decreased appetite [Unknown]
  - Ventricular fibrillation [Recovered/Resolved]
  - Orthostatic intolerance [Unknown]
  - Electrocardiogram QT prolonged [Recovered/Resolved]

NARRATIVE: CASE EVENT DATE: 20200226
